FAERS Safety Report 11416535 (Version 1)
Quarter: 2015Q3

REPORT INFORMATION
  Report Type: Spontaneous
  Country: US (occurrence: US)
  Receive Date: 20150825
  Receipt Date: 20150825
  Transmission Date: 20151125
  Serious: No
  Sender: FDA-Public Use
  Company Number: US-BAYER-2015-403583

PATIENT

DRUGS (2)
  1. ALEVE PM [Suspect]
     Active Substance: DIPHENHYDRAMINE HYDROCHLORIDE\NAPROXEN SODIUM
  2. ALEVE [Suspect]
     Active Substance: NAPROXEN SODIUM

REACTIONS (6)
  - Therapeutic response unexpected [Unknown]
  - Product use issue [Unknown]
  - Rash [Unknown]
  - Pain [Unknown]
  - Dizziness [Unknown]
  - Product use issue [None]
